FAERS Safety Report 5818097-0 (Version None)
Quarter: 2008Q3

REPORT INFORMATION
  Report Type: 
  Country: None (occurrence: None)
  Receive Date: 20080722
  Receipt Date: 20070911
  Transmission Date: 20090109
  Serious: No
  Sender: FDA-Public Use
  Company Number: US-BAYER-US-2007-034299

PATIENT
  Age: 44 Year
  Sex: Female
  Weight: 66 kg

DRUGS (3)
  1. MAGNEVIST [Suspect]
     Indication: NUCLEAR MAGNETIC RESONANCE IMAGING
     Dosage: TOTAL DAILY DOSE: 5 ML  UNIT DOSE: 15 ML
     Route: 042
     Dates: start: 20070905, end: 20070905
  2. ATIVAN [Concomitant]
     Dosage: UNIT DOSE: 2 MG
  3. DILANTIN [Concomitant]
     Indication: CONVULSION
     Dosage: UNIT DOSE: 800 MG

REACTIONS (6)
  - BURNING SENSATION [None]
  - CHEST DISCOMFORT [None]
  - FEELING HOT [None]
  - PRURITUS GENERALISED [None]
  - TACHYCARDIA [None]
  - TREMOR [None]
